FAERS Safety Report 16101777 (Version 1)
Quarter: 2019Q1

REPORT INFORMATION
  Report Type: Spontaneous
  Country: US (occurrence: US)
  Receive Date: 20190321
  Receipt Date: 20190321
  Transmission Date: 20190418
  Serious: Yes (Other)
  Sender: FDA-Public Use
  Company Number: US-UNICHEM PHARMACEUTICALS (USA) INC-UCM201903-000095

PATIENT
  Sex: Female

DRUGS (1)
  1. AMLODIPINE [Suspect]
     Active Substance: AMLODIPINE BESYLATE
     Indication: HYPERTENSION
     Dosage: HALF A TABLET ONCE A DAY AT BEDTIME
     Dates: start: 2014

REACTIONS (8)
  - Pain [Unknown]
  - Swelling [Unknown]
  - Muscle rigidity [Unknown]
  - Labile blood pressure [Unknown]
  - Blindness [Unknown]
  - Cataract [Unknown]
  - Joint swelling [Unknown]
  - Dyskinesia [Unknown]
